FAERS Safety Report 7323022-X (Version None)
Quarter: 2011Q1

REPORT INFORMATION
  Report Type: 
  Country: None (occurrence: None)
  Receive Date: 20110301
  Receipt Date: 20110225
  Transmission Date: 20110831
  Serious: Yes (Death)
  Sender: FDA-Public Use
  Company Number: PHHY2011US15299

PATIENT
  Sex: Female

DRUGS (2)
  1. EXJADE [Suspect]
     Dosage: 07 DF (1750 MG) EVERY DAY
     Route: 048
  2. ACETAMINOPHEN [Concomitant]
     Dosage: 500 MG, UNK

REACTIONS (1)
  - PNEUMONIA [None]
